FAERS Safety Report 5904965-8 (Version None)
Quarter: 2008Q3

REPORT INFORMATION
  Report Type: 
  Country: None (occurrence: None)
  Receive Date: 20080909
  Receipt Date: 20080624
  Transmission Date: 20090109
  Serious: Yes (Death, Hospitalization)
  Sender: FDA-Public Use
  Company Number: 163-20785-08030373

PATIENT
  Age: 50 Year
  Sex: Male

DRUGS (16)
  1. THALOMID [Suspect]
     Indication: MULTIPLE MYELOMA
     Dosage: 350 MG, DAILY, ORAL ; 200/250/300MG, 7 DAYS EACH THEN INCREASED, ORAL
     Route: 048
     Dates: start: 20080131, end: 20080201
  2. THALOMID [Suspect]
     Indication: MULTIPLE MYELOMA
     Dosage: 350 MG, DAILY, ORAL ; 200/250/300MG, 7 DAYS EACH THEN INCREASED, ORAL
     Route: 048
     Dates: start: 20080201, end: 20080201
  3. THALOMID [Suspect]
  4. ZOMETA [Concomitant]
  5. VALIUM [Concomitant]
  6. VASOTEC [Concomitant]
  7. PROZAC [Concomitant]
  8. IMDUR [Concomitant]
  9. KLOR-CON [Concomitant]
  10. MAGNESIUM OXIDE (MAGNESIUM OXIDE) [Concomitant]
  11. TOPROL-XL [Concomitant]
  12. PROCARDIA [Concomitant]
  13. CALCIUM (CALCIUM) [Concomitant]
  14. LORCET (VICODIN) [Concomitant]
  15. PROTONIX [Concomitant]
  16. DECADRON [Concomitant]

REACTIONS (2)
  - DEHYDRATION [None]
  - MULTIPLE MYELOMA [None]
